FAERS Safety Report 23315867 (Version 3)
Quarter: 2024Q1

REPORT INFORMATION
  Report Type: Report from Study
  Country: CN (occurrence: CN)
  Receive Date: 20231219
  Receipt Date: 20240122
  Transmission Date: 20240409
  Serious: No
  Sender: FDA-Public Use
  Company Number: CN-PFIZER INC-PV202300203017

PATIENT
  Age: 69 Year
  Sex: Male
  Weight: 65 kg

DRUGS (16)
  1. NIRMATRELVIR\RITONAVIR [Suspect]
     Active Substance: NIRMATRELVIR\RITONAVIR
     Indication: COVID-19 treatment
     Dosage: [NIRMATRELVIR 300 MG]/[RITONAVIR 100 MG], 2X/DAY
     Route: 048
     Dates: start: 20220424, end: 20220505
  2. OXYGEN [Concomitant]
     Active Substance: OXYGEN
     Indication: COVID-19
     Dosage: UNK
     Route: 055
     Dates: start: 20220417, end: 20220418
  3. LACIDOPHILIN [ENTEROCOCCUS FAECALIS] [Concomitant]
     Indication: Laxative supportive care
     Dosage: UNK
     Route: 048
     Dates: start: 20220417, end: 20220418
  4. VALPROATE SODIUM [Concomitant]
     Active Substance: VALPROATE SODIUM
     Indication: Epilepsy
     Dosage: EXTENDED RELEASE TABLET
     Route: 048
     Dates: start: 20220417, end: 20220418
  5. RABEPRAZOLE SODIUM [Concomitant]
     Active Substance: RABEPRAZOLE SODIUM
     Indication: Prophylaxis
     Dosage: ENTERIC CAPSULE
     Route: 048
     Dates: start: 20220417, end: 20220418
  6. ASPIRIN [Concomitant]
     Active Substance: ASPIRIN
     Indication: Antiplatelet therapy
     Dosage: ENTERIC-COATED TABLET
     Route: 058
     Dates: start: 20220417, end: 20220418
  7. ATORVASTATIN CALCIUM [Concomitant]
     Active Substance: ATORVASTATIN CALCIUM
     Dosage: FOR DEGRADE
     Route: 048
     Dates: start: 20220417, end: 20220418
  8. MOXIFLOXACIN HYDROCHLORIDE [Concomitant]
     Active Substance: MOXIFLOXACIN HYDROCHLORIDE\MOXIFLOXACIN HYDROCHLORIDE MONOHYDRATE
     Indication: Anti-infective therapy
     Dosage: UNK
     Route: 042
     Dates: start: 20220417, end: 20220418
  9. AMBROXOL HYDROCHLORIDE [Concomitant]
     Active Substance: AMBROXOL HYDROCHLORIDE
     Indication: Productive cough
     Dosage: UNK
     Route: 048
     Dates: start: 20220417, end: 20220418
  10. CEFEPIME HYDROCHLORIDE [Concomitant]
     Active Substance: CEFEPIME HYDROCHLORIDE
     Indication: Anti-infective therapy
     Dosage: UNK
     Route: 042
     Dates: start: 20220417, end: 20220418
  11. ALBUTEROL SULFATE\IPRATROPIUM BROMIDE [Concomitant]
     Active Substance: ALBUTEROL SULFATE\IPRATROPIUM BROMIDE
     Indication: Productive cough
     Dosage: UNK
     Route: 055
     Dates: start: 20220418, end: 20220418
  12. CHYMOTRYPSIN [Concomitant]
     Active Substance: CHYMOTRYPSIN
     Indication: Asthma
     Dosage: UNK
     Route: 055
     Dates: start: 20220418, end: 20220418
  13. CEFTRIAXONE SODIUM [Concomitant]
     Active Substance: CEFTRIAXONE SODIUM
     Indication: Anti-infective therapy
     Dosage: UNK
     Route: 042
     Dates: start: 20220419, end: 20220419
  14. POTASSIUM CHLORIDE [Concomitant]
     Active Substance: POTASSIUM CHLORIDE
     Indication: Mineral supplementation
     Dosage: 10 % (NASOGASTRIC)
     Dates: start: 20220422, end: 20220429
  15. DOMPERIDONE [Concomitant]
     Active Substance: DOMPERIDONE
     Indication: Prophylaxis
     Dosage: UNK
     Route: 048
     Dates: start: 20220427, end: 20220511
  16. URAPIDIL [Concomitant]
     Active Substance: URAPIDIL
     Indication: Hypertension
     Dosage: UNK
     Route: 042
     Dates: start: 20220420, end: 20220420

REACTIONS (1)
  - Overdose [Unknown]
